FAERS Safety Report 18014268 (Version 1)
Quarter: 2020Q3

REPORT INFORMATION
  Report Type: Spontaneous
  Country: US (occurrence: US)
  Receive Date: 20200713
  Receipt Date: 20200713
  Transmission Date: 20201103
  Serious: Yes (Life-Threatening, Other)
  Sender: FDA-Public Use
  Company Number: None

PATIENT
  Age: 25 Year
  Sex: Female
  Weight: 142.6 kg

DRUGS (10)
  1. REMDESIVIR. [Suspect]
     Active Substance: REMDESIVIR
     Indication: COVID-19 PNEUMONIA
     Dosage: ?          OTHER FREQUENCY:ONE TIME;?
     Route: 042
     Dates: start: 20200711, end: 20200712
  2. CEFTRIAXONE. [Concomitant]
     Active Substance: CEFTRIAXONE
  3. HEPARIN [Concomitant]
     Active Substance: HEPARIN SODIUM
  4. NYSTATIN. [Concomitant]
     Active Substance: NYSTATIN
  5. DEXAMETHASONE. [Concomitant]
     Active Substance: DEXAMETHASONE
  6. LASIX [Concomitant]
     Active Substance: FUROSEMIDE
  7. VANCOMYCIN [Concomitant]
     Active Substance: VANCOMYCIN
  8. REGULAR INSULIN [Concomitant]
     Active Substance: INSULIN NOS
  9. PROTONIX [Concomitant]
     Active Substance: PANTOPRAZOLE SODIUM
  10. AZITHROMYCIN ANHYDROUS. [Concomitant]
     Active Substance: AZITHROMYCIN ANHYDROUS

REACTIONS (2)
  - Disease progression [None]
  - Acute kidney injury [None]

NARRATIVE: CASE EVENT DATE: 20200712
